FAERS Safety Report 7292690-3 (Version None)
Quarter: 2011Q1

REPORT INFORMATION
  Report Type: 
  Country: None (occurrence: None)
  Receive Date: 20110215
  Receipt Date: 20110202
  Transmission Date: 20110831
  Serious: Yes (Hospitalization, Other)
  Sender: FDA-Public Use
  Company Number: PHHY2010DE30323

PATIENT
  Sex: Female
  Weight: 71.9 kg

DRUGS (3)
  1. LEVOTHYROXINE SODIUM [Concomitant]
     Dosage: UNK
     Dates: start: 19940101
  2. CGS 20267 [Suspect]
     Indication: BREAST CANCER
     Dosage: 2.5 MG DAILY
     Route: 048
     Dates: start: 20090912
  3. VERAPAMIL [Concomitant]
     Dosage: UNK
     Dates: start: 20040101

REACTIONS (6)
  - ABNORMAL SENSATION IN EYE [None]
  - BONE PAIN [None]
  - MACULAR DEGENERATION [None]
  - VISUAL ACUITY REDUCED [None]
  - FIBROADENOMA OF BREAST [None]
  - INSOMNIA [None]
